FAERS Safety Report 4494565-1 (Version None)
Quarter: 2004Q4

REPORT INFORMATION
  Report Type: 
  Country: None (occurrence: None)
  Receive Date: 20041105
  Receipt Date: 20041005
  Transmission Date: 20050328
  Serious: Yes (Hospitalization)
  Sender: FDA-Public Use
  Company Number: US-MERCK-0410USA00714

PATIENT
  Sex: Male

DRUGS (9)
  1. VIOXX [Suspect]
     Indication: ARTHRALGIA
     Route: 048
     Dates: end: 20040901
  2. CYANOCOBALAMIN [Concomitant]
     Route: 065
  3. FOLIC ACID [Concomitant]
     Route: 065
  4. THIAMINE [Concomitant]
     Route: 065
  5. ATENOLOL [Concomitant]
     Route: 065
  6. GLYBURIDE [Concomitant]
     Route: 065
  7. HYDRODIURIL [Concomitant]
     Route: 048
  8. ASPIRIN [Concomitant]
     Route: 065
  9. PERIOSTAT [Concomitant]
     Route: 065

REACTIONS (1)
  - CEREBROVASCULAR ACCIDENT [None]
